FAERS Safety Report 24871151 (Version 1)
Quarter: 2025Q1

REPORT INFORMATION
  Report Type: Spontaneous
  Country: SG (occurrence: SG)
  Receive Date: 20250122
  Receipt Date: 20250122
  Transmission Date: 20250408
  Serious: Yes (Death, Other)
  Sender: Kenvue
  Company Number: SG-KENVUE-20250107918

PATIENT

DRUGS (1)
  1. ACETAMINOPHEN [Suspect]
     Active Substance: ACETAMINOPHEN
     Indication: Product used for unknown indication
     Route: 048

REACTIONS (5)
  - Drug-induced liver injury [Fatal]
  - Nephropathy toxic [Fatal]
  - Coagulopathy [Fatal]
  - Acute hepatic failure [Fatal]
  - Overdose [Fatal]
